FAERS Safety Report 23192901 (Version 1)
Quarter: 2023Q4

REPORT INFORMATION
  Report Type: Spontaneous
  Country: US (occurrence: US)
  Receive Date: 20231116
  Receipt Date: 20231116
  Transmission Date: 20240110
  Serious: No
  Sender: FDA-Public Use
  Company Number: US-SANOFI-01839967

PATIENT

DRUGS (2)
  1. THYROGEN [Suspect]
     Active Substance: THYROTROPIN ALFA
     Dosage: UNK
     Route: 065
  2. SODIUM IODIDE I-131 [Concomitant]
     Active Substance: SODIUM IODIDE I-131
     Dosage: UNK

REACTIONS (1)
  - Pruritus [Unknown]
